FAERS Safety Report 9937276 (Version 2)
Quarter: 2014Q1

REPORT INFORMATION
  Report Type: Spontaneous
  Country: US (occurrence: US)
  Receive Date: 20140302
  Receipt Date: 20140319
  Transmission Date: 20141002
  Serious: No
  Sender: FDA-Public Use
  Company Number: US-009507513-1402USA013077

PATIENT
  Age: 52 Year
  Sex: Female
  Weight: 56.69 kg

DRUGS (1)
  1. OXYTROL FOR WOMEN [Suspect]
     Indication: STRESS URINARY INCONTINENCE
     Dosage: UNK, UNKNOWN
     Route: 062
     Dates: start: 201311, end: 201401

REACTIONS (3)
  - Application site discomfort [Recovered/Resolved]
  - Drug ineffective [Unknown]
  - Off label use [Unknown]
